FAERS Safety Report 7339166-2 (Version None)
Quarter: 2011Q1

REPORT INFORMATION
  Report Type: 
  Country: None (occurrence: None)
  Receive Date: 20110308
  Receipt Date: 20110308
  Transmission Date: 20110831
  Serious: Yes (Hospitalization)
  Sender: FDA-Public Use
  Company Number: PHHO2008JP02602

PATIENT
  Sex: Male
  Weight: 72 kg

DRUGS (1)
  1. FTY [Suspect]
     Dosage: 1.25 MG, QD
     Route: 048
     Dates: start: 20080121

REACTIONS (2)
  - VIITH NERVE PARALYSIS [None]
  - DYSKINESIA [None]
